FAERS Safety Report 21920167 (Version 3)
Quarter: 2023Q1

REPORT INFORMATION
  Report Type: Spontaneous
  Country: US (occurrence: US)
  Receive Date: 20230127
  Receipt Date: 20230211
  Transmission Date: 20230417
  Serious: Yes (Other)
  Sender: FDA-Public Use
  Company Number: US-TEVA-2023-US-2848268

PATIENT
  Sex: Female

DRUGS (3)
  1. DIAZEPAM [Suspect]
     Active Substance: DIAZEPAM
     Indication: Product used for unknown indication
     Dosage: 30 MILLIGRAM DAILY;
     Route: 065
  2. DIAZEPAM [Suspect]
     Active Substance: DIAZEPAM
     Dosage: 10 MILLIGRAM DAILY;
     Route: 065
  3. DIAZEPAM [Suspect]
     Active Substance: DIAZEPAM
     Dosage: 20 MILLIGRAM DAILY;
     Route: 065

REACTIONS (21)
  - Drug dependence [Unknown]
  - Suicidal ideation [Recovered/Resolved]
  - Illness [Not Recovered/Not Resolved]
  - Fatigue [Not Recovered/Not Resolved]
  - Somnolence [Not Recovered/Not Resolved]
  - Headache [Not Recovered/Not Resolved]
  - Sinusitis [Not Recovered/Not Resolved]
  - Anger [Not Recovered/Not Resolved]
  - Mood swings [Not Recovered/Not Resolved]
  - Euphoric mood [Unknown]
  - Depression [Unknown]
  - Aphonia [Unknown]
  - Depressed mood [Unknown]
  - Speech disorder [Unknown]
  - Salivary hypersecretion [Unknown]
  - Insomnia [Unknown]
  - Dysarthria [Unknown]
  - Cerebral disorder [Unknown]
  - Malaise [Unknown]
  - Alopecia [Unknown]
  - Feeling drunk [Unknown]

NARRATIVE: CASE EVENT DATE: 20220101
